FAERS Safety Report 4659525-6 (Version None)
Quarter: 2005Q2

REPORT INFORMATION
  Report Type: 
  Country: None (occurrence: None)
  Receive Date: 20050511
  Receipt Date: 20050509
  Transmission Date: 20051028
  Serious: Yes (Hospitalization)
  Sender: FDA-Public Use
  Company Number: NL-MERCK-0505NLD00005

PATIENT
  Age: 64 Year
  Sex: Male

DRUGS (11)
  1. COZAAR [Suspect]
     Route: 048
     Dates: start: 20031211
  2. RABEPRAZOLE SODIUM [Suspect]
     Route: 048
     Dates: start: 20010626
  3. ASPIRIN [Suspect]
     Route: 048
     Dates: start: 20001211
  4. DOXAZOSIN MESYLATE [Suspect]
     Route: 048
     Dates: start: 20030920
  5. BUMETANIDE [Suspect]
     Route: 048
     Dates: start: 20040924
  6. CELIPROLOL HYDROCHLORIDE [Suspect]
     Route: 048
     Dates: start: 20020417
  7. PRAVASTATIN SODIUM [Suspect]
     Route: 048
     Dates: start: 20030912
  8. DICLOFENAC [Suspect]
     Route: 048
     Dates: start: 20040401
  9. ALLOPURINOL [Suspect]
     Route: 048
     Dates: start: 20001211
  10. TEMAZEPAM [Suspect]
     Route: 048
     Dates: start: 20030411
  11. TIOTROPIUM BROMIDE [Suspect]
     Route: 055
     Dates: start: 20050202

REACTIONS (1)
  - GYNAECOMASTIA [None]
